FAERS Safety Report 4872007-1 (Version None)
Quarter: 2005Q4

REPORT INFORMATION
  Report Type: 
  Country: None (occurrence: None)
  Receive Date: 20051230
  Receipt Date: 20051222
  Transmission Date: 20060501
  Serious: Yes (Death)
  Sender: FDA-Public Use
  Company Number: 2005S1012094

PATIENT
  Age: 65 Year
  Sex: Female

DRUGS (9)
  1. CLOZAPINE [Suspect]
     Dosage: SEE IMAGE
     Route: 047
     Dates: start: 20041021, end: 20051219
  2. CLOZAPINE [Suspect]
     Dosage: SEE IMAGE
     Route: 047
     Dates: start: 20041021, end: 20051219
  3. ZIPRASIDONE [Concomitant]
  4. HYDROCHLORIDE [Concomitant]
  5. SERTRALINE [Concomitant]
  6. . [Concomitant]
  7. LEVOTHYROXINE SODIUM [Concomitant]
  8. POTASSIUM [Concomitant]
  9. LEVOFLOXACIN [Concomitant]

REACTIONS (1)
  - DEATH [None]
